FAERS Safety Report 23026444 (Version 1)
Quarter: 2023Q4

REPORT INFORMATION
  Report Type: Spontaneous
  Country: HR (occurrence: HR)
  Receive Date: 20231004
  Receipt Date: 20231004
  Transmission Date: 20240110
  Serious: Yes (Other)
  Sender: FDA-Public Use
  Company Number: HR-BRISTOL-MYERS SQUIBB COMPANY-2023-137398

PATIENT
  Age: 63 Year
  Sex: Male

DRUGS (26)
  1. DEXAMETHASONE [Suspect]
     Active Substance: DEXAMETHASONE
     Indication: Plasma cell myeloma
     Route: 065
     Dates: start: 202203, end: 202205
  2. DEXAMETHASONE [Suspect]
     Active Substance: DEXAMETHASONE
     Indication: Osteolysis
     Route: 065
     Dates: start: 202208, end: 202302
  3. LENALIDOMIDE [Suspect]
     Active Substance: LENALIDOMIDE
     Indication: Osteolysis
     Route: 065
     Dates: start: 202208, end: 202302
  4. LENALIDOMIDE [Suspect]
     Active Substance: LENALIDOMIDE
     Indication: Plasma cell myeloma
  5. DARATUMUMAB [Concomitant]
     Active Substance: DARATUMUMAB
     Indication: Plasma cell myeloma
     Dates: start: 202208, end: 202302
  6. DARATUMUMAB [Concomitant]
     Active Substance: DARATUMUMAB
     Indication: Osteolysis
  7. CISPLATIN [Concomitant]
     Active Substance: CISPLATIN
     Indication: Plasma cell myeloma
     Dates: start: 202303
  8. CISPLATIN [Concomitant]
     Active Substance: CISPLATIN
     Indication: Osteolysis
  9. VINCRISTINE [Concomitant]
     Active Substance: VINCRISTINE
     Indication: Osteolysis
  10. VINCRISTINE [Concomitant]
     Active Substance: VINCRISTINE
     Indication: Plasma cell myeloma
  11. MELPHALAN [Concomitant]
     Active Substance: MELPHALAN
     Indication: Plasma cell myeloma
     Dates: start: 202304, end: 202306
  12. MELPHALAN [Concomitant]
     Active Substance: MELPHALAN
     Indication: Osteolysis
  13. PREDNISONE [Concomitant]
     Active Substance: PREDNISONE
     Indication: Osteolysis
     Dates: start: 202304, end: 202306
  14. PREDNISONE [Concomitant]
     Active Substance: PREDNISONE
     Indication: Plasma cell myeloma
  15. DOXORUBICIN [Concomitant]
     Active Substance: DOXORUBICIN
     Indication: Osteolysis
     Dates: start: 202303
  16. DOXORUBICIN [Concomitant]
     Active Substance: DOXORUBICIN
     Indication: Plasma cell myeloma
  17. ETOPOSIDE [Concomitant]
     Active Substance: ETOPOSIDE
     Indication: Osteolysis
     Dates: start: 202303
  18. ETOPOSIDE [Concomitant]
     Active Substance: ETOPOSIDE
     Indication: Plasma cell myeloma
  19. CARFILZOMIB [Concomitant]
     Active Substance: CARFILZOMIB
     Indication: Osteolysis
  20. CARFILZOMIB [Concomitant]
     Active Substance: CARFILZOMIB
     Indication: Plasma cell myeloma
  21. CYCLOPHOSPHAMIDE [Concomitant]
     Active Substance: CYCLOPHOSPHAMIDE
     Indication: Osteolysis
     Dates: start: 202203, end: 202205
  22. CYCLOPHOSPHAMIDE [Concomitant]
     Active Substance: CYCLOPHOSPHAMIDE
     Indication: Plasma cell myeloma
     Dates: start: 202303
  23. IXAZOMIB [Concomitant]
     Active Substance: IXAZOMIB
     Indication: Plasma cell myeloma
     Dates: start: 202306, end: 202308
  24. IXAZOMIB [Concomitant]
     Active Substance: IXAZOMIB
     Indication: Osteolysis
  25. BORTEZOMIB [Concomitant]
     Active Substance: BORTEZOMIB
     Indication: Osteolysis
     Dates: start: 202203, end: 202205
  26. BORTEZOMIB [Concomitant]
     Active Substance: BORTEZOMIB
     Indication: Plasma cell myeloma

REACTIONS (2)
  - Plasma cell myeloma [Unknown]
  - Febrile neutropenia [Unknown]
